FAERS Safety Report 5882297-4 (Version None)
Quarter: 2008Q3

REPORT INFORMATION
  Report Type: 
  Country: None (occurrence: None)
  Receive Date: 20080912
  Receipt Date: 20080729
  Transmission Date: 20090109
  Serious: No
  Sender: FDA-Public Use
  Company Number: US-ABBOTT-08P-163-0467044-00

PATIENT
  Sex: Female
  Weight: 65.376 kg

DRUGS (7)
  1. HUMIRA [Suspect]
     Indication: RHEUMATOID ARTHRITIS
     Route: 058
     Dates: start: 20080301, end: 20080501
  2. HUMIRA [Suspect]
     Route: 058
     Dates: start: 20080501
  3. FEXOFENADINE [Concomitant]
     Indication: SEASONAL ALLERGY
     Dates: start: 20060101
  4. AZATHIOPRINE [Concomitant]
     Indication: RHEUMATOID ARTHRITIS
     Route: 048
     Dates: start: 20080101
  5. ENALAPRIL MALEATE [Concomitant]
     Indication: HYPERTENSION
     Dosage: 10/50 MG
     Route: 048
  6. VITAMIN TAB [Concomitant]
     Indication: VITAMIN SUPPLEMENTATION
     Route: 048
  7. ESOMEPRAZOLE MAGNESIUM [Concomitant]
     Indication: GASTROOESOPHAGEAL REFLUX DISEASE
     Route: 048

REACTIONS (5)
  - ARTHRALGIA [None]
  - INCORRECT DRUG ADMINISTRATION DURATION [None]
  - JOINT SWELLING [None]
  - MUSCULOSKELETAL STIFFNESS [None]
  - PAIN [None]
